FAERS Safety Report 16803263 (Version 1)
Quarter: 2019Q3

REPORT INFORMATION
  Report Type: Report from Study
  Country: US (occurrence: US)
  Receive Date: 20190913
  Receipt Date: 20190913
  Transmission Date: 20191005
  Serious: No
  Sender: FDA-Public Use
  Company Number: PHEH2019US037562

PATIENT
  Sex: Male

DRUGS (1)
  1. ENTRESTO [Suspect]
     Active Substance: SACUBITRIL\VALSARTAN
     Indication: PRODUCT USED FOR UNKNOWN INDICATION
     Route: 048

REACTIONS (12)
  - Insomnia [Unknown]
  - Blood pressure fluctuation [Unknown]
  - Drug ineffective [Unknown]
  - Neck pain [Unknown]
  - Nausea [Unknown]
  - Malaise [Unknown]
  - Visual impairment [Unknown]
  - Dizziness [Unknown]
  - Decreased appetite [Unknown]
  - Fall [Unknown]
  - Eye pain [Unknown]
  - Headache [Unknown]
